FAERS Safety Report 5130042-2 (Version None)
Quarter: 2006Q4

REPORT INFORMATION
  Report Type: 
  Country: None (occurrence: None)
  Receive Date: 20061018
  Receipt Date: 20061010
  Transmission Date: 20070319
  Serious: Yes (Hospitalization)
  Sender: FDA-Public Use
  Company Number: NO-MERCK-0610NOR00007

PATIENT
  Age: 85 Year
  Sex: Female

DRUGS (4)
  1. HYZAAR [Suspect]
     Indication: HYPERTENSION
     Route: 048
     Dates: end: 20060901
  2. TRUSOPT [Concomitant]
     Route: 047
  3. ASCORBIC ACID AND CALCIUM PHOSPHATE, DIBASIC AND CHOLECALCIFEROL [Concomitant]
     Route: 048
  4. LEVOTHYROXINE SODIUM [Concomitant]
     Indication: HYPOTHYROIDISM
     Route: 048

REACTIONS (3)
  - GENERAL PHYSICAL HEALTH DETERIORATION [None]
  - HYPOCHLORAEMIA [None]
  - HYPONATRAEMIA [None]
